FAERS Safety Report 21106242 (Version 2)
Quarter: 2022Q3

REPORT INFORMATION
  Report Type: Spontaneous
  Country: US (occurrence: US)
  Receive Date: 20220720
  Receipt Date: 20220722
  Transmission Date: 20221026
  Serious: Yes (Hospitalization)
  Sender: FDA-Public Use
  Company Number: US-BIOCODEX2-2022000235

PATIENT

DRUGS (3)
  1. DIACOMIT [Suspect]
     Active Substance: STIRIPENTOL
     Indication: Idiopathic generalised epilepsy
     Dosage: 1000 MG, QD (500 MG TWICE DAILY)
     Route: 048
     Dates: start: 20211117
  2. DIACOMIT [Suspect]
     Active Substance: STIRIPENTOL
     Dosage: 1500 MG, QD (500 MG THREE TIMES DAILY)
     Route: 048
  3. ONFI [Concomitant]
     Active Substance: CLOBAZAM
     Indication: Product used for unknown indication
     Route: 065

REACTIONS (2)
  - Dyspnoea [Unknown]
  - Product use in unapproved indication [Unknown]
